FAERS Safety Report 5163705-3 (Version None)
Quarter: 2006Q4

REPORT INFORMATION
  Report Type: 
  Country: None (occurrence: None)
  Receive Date: 20061204
  Receipt Date: 20020624
  Transmission Date: 20070319
  Serious: Yes (Hospitalization)
  Sender: FDA-Public Use
  Company Number: FR-GLAXOSMITHKLINE-B0271874B

PATIENT
  Sex: Female
  Weight: 2.3 kg

DRUGS (6)
  1. RETROVIR [Suspect]
     Indication: ANTIVIRAL PROPHYLAXIS
     Route: 048
     Dates: start: 20020420
  2. COMBIVIR [Suspect]
     Indication: HIV INFECTION
     Dates: start: 20020101
  3. VIRACEPT [Suspect]
     Indication: HIV INFECTION
     Dates: start: 20020101
  4. RETROVIR [Suspect]
     Dates: start: 20020420, end: 20020420
  5. BACTRIM [Concomitant]
  6. IRON [Concomitant]

REACTIONS (4)
  - ACCIDENTAL OVERDOSE [None]
  - DRUG EXPOSURE DURING PREGNANCY [None]
  - FOETAL DISTRESS SYNDROME [None]
  - HEPATOMEGALY [None]
